FAERS Safety Report 7034604-7 (Version None)
Quarter: 2010Q4

REPORT INFORMATION
  Report Type: 
  Country: None (occurrence: None)
  Receive Date: 20101008
  Receipt Date: 20100928
  Transmission Date: 20110411
  Serious: Yes (Other)
  Sender: FDA-Public Use
  Company Number: US-SOLVAY-00210002991

PATIENT
  Age: 65 Year
  Sex: Male
  Weight: 81.818 kg

DRUGS (7)
  1. ANDROGEL [Suspect]
     Indication: BLOOD TESTOSTERONE DECREASED
     Dosage: DAILY DOSE:  UNKNOWN
     Route: 062
     Dates: start: 20050101, end: 20090901
  2. ANDROGEL [Suspect]
     Dosage: DAILY DOSE:  UNKNOWN ^LOW DOSE^
     Route: 062
     Dates: start: 20091001, end: 20091231
  3. ANDROGEL [Suspect]
     Dosage: DAILY DOSE:  UNKNOWN
     Route: 062
     Dates: start: 20100301, end: 20100401
  4. ANDROGEL [Suspect]
     Dosage: DAILY DOSE: 2.5 GRAM(S)
     Route: 062
     Dates: start: 20100401, end: 20100101
  5. ANDROGEL [Suspect]
     Dosage: DAILY DOSE:  UNKNOWN
     Route: 062
     Dates: start: 20100101, end: 20100101
  6. ANDROGEL [Suspect]
     Dosage: DAILY DOSE:  UNKNOWN
     Route: 062
     Dates: start: 20100101, end: 20100101
  7. ANDROGEL [Suspect]
     Dosage: DAILY DOSE:  UNKNOWN
     Route: 062
     Dates: start: 20100101

REACTIONS (8)
  - ASTHENIA [None]
  - BLOOD TESTOSTERONE INCREASED [None]
  - MUSCLE ATROPHY [None]
  - POST PROCEDURAL COMPLICATION [None]
  - PROSTATE CANCER [None]
  - RADIATION INJURY [None]
  - URTICARIA CHOLINERGIC [None]
  - WAIST CIRCUMFERENCE INCREASED [None]
